FAERS Safety Report 8077192-9 (Version None)
Quarter: 2012Q1

REPORT INFORMATION
  Report Type: 
  Country: None (occurrence: None)
  Receive Date: 20120127
  Receipt Date: 20120118
  Transmission Date: 20120608
  Serious: Yes (Other)
  Sender: FDA-Public Use
  Company Number: US-ALLERGAN-1115602US

PATIENT
  Age: 53 Year
  Sex: Female
  Weight: 68.027 kg

DRUGS (10)
  1. BOTULINUM TOXIN TYPE A [Suspect]
     Indication: MUSCLE SPASTICITY
     Dosage: 400 UNITS, SINGLE
     Route: 030
     Dates: start: 20100517, end: 20100517
  2. TIZANIDINE HCL [Concomitant]
     Dosage: 4 MG, Q8HR
  3. LEVOTHROID [Concomitant]
     Dosage: 75 A?G, QD
     Route: 048
  4. ATENOLOL [Concomitant]
     Dosage: 50 MG, QD
     Route: 048
  5. MELOXICAM [Concomitant]
     Dosage: 7.5 MG, QD
  6. SIMVASTATIN [Concomitant]
     Dosage: 80 MG, UNK
  7. BACLOFEN [Concomitant]
     Dosage: 10 MG, TID
     Route: 048
     Dates: start: 20100510
  8. COUMADIN [Concomitant]
     Dosage: 3 MG, QD
  9. ISOSORBIDE DINITRATE [Concomitant]
     Dosage: 30 MG, QD
  10. DARVOCET-N 50 [Concomitant]
     Dosage: 100 MG, PRN

REACTIONS (9)
  - FATIGUE [None]
  - NAUSEA [None]
  - BLADDER DISORDER [None]
  - ASTHENIA [None]
  - DYSPHONIA [None]
  - LETHARGY [None]
  - DRUG INEFFECTIVE [None]
  - BOTULISM [None]
  - SOMNOLENCE [None]
